FAERS Safety Report 5830602-7 (Version None)
Quarter: 2008Q3

REPORT INFORMATION
  Report Type: 
  Country: None (occurrence: None)
  Receive Date: 20080801
  Receipt Date: 20070810
  Transmission Date: 20090109
  Serious: No
  Sender: FDA-Public Use
  Company Number: US-BRISTOL-MYERS SQUIBB COMPANY-13873922

PATIENT
  Sex: Female
  Weight: 68 kg

DRUGS (4)
  1. COUMADIN [Suspect]
     Indication: PULMONARY EMBOLISM
     Route: 048
     Dates: start: 20050401
  2. COUMADIN [Suspect]
     Indication: THROMBOSIS
     Route: 048
     Dates: start: 20050401
  3. COUMADIN [Suspect]
     Indication: CARDIAC FAILURE CONGESTIVE
     Route: 048
     Dates: start: 20050401
  4. TYLENOL [Concomitant]

REACTIONS (8)
  - ALOPECIA [None]
  - BALANCE DISORDER [None]
  - BLOOD URINE [None]
  - DIZZINESS [None]
  - FAECAL INCONTINENCE [None]
  - OEDEMA PERIPHERAL [None]
  - URINARY INCONTINENCE [None]
  - VISION BLURRED [None]
